FAERS Safety Report 6837089-6 (Version None)
Quarter: 2010Q3

REPORT INFORMATION
  Report Type: 
  Country: None (occurrence: None)
  Receive Date: 20100713
  Receipt Date: 20070503
  Transmission Date: 20110219
  Serious: No
  Sender: FDA-Public Use
  Company Number: US-PFIZER INC-2007037176

PATIENT
  Sex: Female
  Weight: 47.727 kg

DRUGS (11)
  1. CHANTIX [Suspect]
     Indication: SMOKING CESSATION THERAPY
     Dates: start: 20070415
  2. CALCIUM [Concomitant]
     Indication: OSTEOPOROSIS
  3. EVISTA [Concomitant]
     Indication: OSTEOPOROSIS
  4. VITAMIN E [Concomitant]
  5. CELEXA [Concomitant]
  6. BENICAR [Concomitant]
  7. SYNTHROID [Concomitant]
  8. ACETYLSALICYLIC ACID [Concomitant]
  9. VITAMIN B6 [Concomitant]
  10. FOLIC ACID [Concomitant]
  11. MULTI-VITAMINS [Concomitant]

REACTIONS (5)
  - DECREASED APPETITE [None]
  - DIARRHOEA [None]
  - FATIGUE [None]
  - NAUSEA [None]
  - PAROSMIA [None]
